FAERS Safety Report 15312989 (Version 9)
Quarter: 2020Q2

REPORT INFORMATION
  Report Type: Spontaneous
  Country: US (occurrence: US)
  Receive Date: 20180823
  Receipt Date: 20200528
  Transmission Date: 20200713
  Serious: No
  Sender: FDA-Public Use
  Company Number: US-ACTELION-A-NJ2018-177313

PATIENT
  Age: 68 Year
  Sex: Female
  Weight: 52.61 kg

DRUGS (5)
  1. AMBRISENTAN [Suspect]
     Active Substance: AMBRISENTAN
     Indication: PRODUCT USED FOR UNKNOWN INDICATION
     Dosage: UNK
     Route: 065
     Dates: start: 201912
  2. VELETRI [Suspect]
     Active Substance: EPOPROSTENOL
     Indication: PULMONARY ARTERIAL HYPERTENSION
     Dosage: 60 NG/KG, PER MIN
     Route: 042
  3. REVATIO [Concomitant]
     Active Substance: SILDENAFIL CITRATE
  4. SILDENAFIL CITRATE. [Concomitant]
     Active Substance: SILDENAFIL CITRATE
  5. VELETRI [Suspect]
     Active Substance: EPOPROSTENOL
     Dosage: 40 NG/KG, PER MIN
     Route: 042

REACTIONS (12)
  - Oxygen saturation decreased [Unknown]
  - Unevaluable investigation [Unknown]
  - Weight decreased [Unknown]
  - Nasopharyngitis [Unknown]
  - Catheter management [Unknown]
  - Headache [Unknown]
  - Hyperhidrosis [Recovering/Resolving]
  - Rash pruritic [Unknown]
  - Fatigue [Unknown]
  - Memory impairment [Unknown]
  - Blood pressure decreased [Unknown]
  - Dizziness [Recovering/Resolving]

NARRATIVE: CASE EVENT DATE: 20200206
